FAERS Safety Report 7059788-6 (Version None)
Quarter: 2010Q4

REPORT INFORMATION
  Report Type: 
  Country: None (occurrence: None)
  Receive Date: 20101025
  Receipt Date: 20101013
  Transmission Date: 20110411
  Serious: Yes (Death)
  Sender: FDA-Public Use
  Company Number: ZA-PFIZER INC-2010130323

PATIENT
  Age: 46 Year
  Sex: Male

DRUGS (2)
  1. GEODON [Suspect]
     Indication: AGITATION
     Dosage: 20 MG, SINGLE
     Route: 030
     Dates: start: 20101010, end: 20101010
  2. GEODON [Suspect]
     Dosage: 20 MG, SINGLE
     Route: 030
     Dates: start: 20101011, end: 20101011

REACTIONS (1)
  - CARDIO-RESPIRATORY ARREST [None]
